FAERS Safety Report 19839168 (Version 1)
Quarter: 2021Q3

REPORT INFORMATION
  Report Type: Spontaneous
  Country: US (occurrence: US)
  Receive Date: 20210915
  Receipt Date: 20210915
  Transmission Date: 20211014
  Serious: No
  Sender: FDA-Public Use
  Company Number: None

PATIENT
  Age: 69 Year
  Sex: Female
  Weight: 84.87 kg

DRUGS (9)
  1. SPIRIVA HANDIHALER 18MCG [Concomitant]
  2. CAPECITABINE. [Suspect]
     Active Substance: CAPECITABINE
     Indication: COLORECTAL CANCER
     Dosage: OTHER FREQUENCY:BID FOR 14/21 DAYS;?
     Route: 048
     Dates: start: 20210716
  3. VENTOLIN HFA [Concomitant]
     Active Substance: ALBUTEROL SULFATE
  4. TYLENOL [Concomitant]
     Active Substance: ACETAMINOPHEN
  5. OMEPRAZOLE 20MG [Concomitant]
     Active Substance: OMEPRAZOLE
  6. IBUPROFEN 600MG [Concomitant]
     Active Substance: IBUPROFEN
  7. ATORVASTATIN 40MG [Concomitant]
     Active Substance: ATORVASTATIN
  8. FLONASE ALLERGY RELIEF 50MCG/ACT [Concomitant]
  9. ZOFRAN [Concomitant]
     Active Substance: ONDANSETRON HYDROCHLORIDE

REACTIONS (4)
  - Thirst [None]
  - Hypoaesthesia [None]
  - Decreased appetite [None]
  - Dehydration [None]

NARRATIVE: CASE EVENT DATE: 20210915
